FAERS Safety Report 6703386-8 (Version None)
Quarter: 2010Q2

REPORT INFORMATION
  Report Type: 
  Country: None (occurrence: None)
  Receive Date: 20100430
  Receipt Date: 20100420
  Transmission Date: 20101027
  Serious: Yes (Death, Other)
  Sender: FDA-Public Use
  Company Number: US-GENZYME-CLOF-1000886

PATIENT
  Sex: Female
  Weight: 69.1 kg

DRUGS (5)
  1. CLOLAR [Suspect]
     Indication: ACUTE MYELOID LEUKAEMIA
     Dosage: 20 MG, UNK
     Route: 042
     Dates: start: 20090308, end: 20090312
  2. GEMTUZUMAB OZOGAMICIN [Suspect]
     Indication: ACUTE MYELOID LEUKAEMIA
     Dosage: 3 MG/M2, UNK
     Route: 065
     Dates: start: 20090308, end: 20090314
  3. VALTREX [Concomitant]
     Indication: PROPHYLAXIS
     Dosage: 500 MG, QD
     Route: 048
     Dates: start: 20090306, end: 20090330
  4. MICAFUNGIN [Concomitant]
     Indication: SEPSIS
     Dosage: 100 MG, QD
     Route: 042
     Dates: start: 20090322, end: 20090330
  5. DAPTOMYCIN [Concomitant]
     Indication: SEPSIS
     Dosage: 400 MG, QD
     Route: 042
     Dates: start: 20090318, end: 20090326

REACTIONS (9)
  - ACIDOSIS [None]
  - ASPARTATE AMINOTRANSFERASE INCREASED [None]
  - DYSPNOEA [None]
  - INFECTION [None]
  - LEFT VENTRICULAR DYSFUNCTION [None]
  - NEUTROPENIA [None]
  - SEPSIS [None]
  - SOMNOLENCE [None]
  - THROMBOCYTOPENIA [None]
